FAERS Safety Report 6609374-4 (Version None)
Quarter: 2010Q1

REPORT INFORMATION
  Report Type: 
  Country: None (occurrence: None)
  Receive Date: 20100224
  Receipt Date: 20100218
  Transmission Date: 20100710
  Serious: Yes (Life-Threatening, Hospitalization)
  Sender: FDA-Public Use
  Company Number: 2009US001490

PATIENT
  Age: 77 Year
  Sex: Male

DRUGS (7)
  1. AMBISOME [Suspect]
     Indication: DRUG USE FOR UNKNOWN INDICATION
     Dosage: 2.5 MG/KG, UID/QD, IV NOS
     Route: 042
  2. SULPERAZON (CEFOPERAZONE SODIUM, SULBACTAM SODIUM) [Concomitant]
  3. ROCEPHIN [Concomitant]
  4. UNASYN [Concomitant]
  5. FOY (GABEXATE MESILATE) [Concomitant]
  6. MIRACLID (ULINASTATIN) [Concomitant]
  7. FAMOTIDINE [Concomitant]

REACTIONS (7)
  - ALANINE AMINOTRANSFERASE INCREASED [None]
  - ASPARTATE AMINOTRANSFERASE INCREASED [None]
  - BLOOD ALKALINE PHOSPHATASE INCREASED [None]
  - BLOOD CREATININE INCREASED [None]
  - BLOOD POTASSIUM DECREASED [None]
  - CHOLECYSTITIS [None]
  - JAUNDICE [None]
